FAERS Safety Report 5471163-4 (Version None)
Quarter: 2007Q3

REPORT INFORMATION
  Report Type: 
  Country: None (occurrence: None)
  Receive Date: 20070928
  Receipt Date: 20070918
  Transmission Date: 20080115
  Serious: Yes (Disabling)
  Sender: FDA-Public Use
  Company Number: FR-ABBOTT-07P-056-0415997-00

PATIENT
  Sex: Female
  Weight: 54.4 kg

DRUGS (3)
  1. HUMIRA [Suspect]
     Indication: RHEUMATOID ARTHRITIS
     Route: 058
     Dates: start: 20070716
  2. HUMIRA [Suspect]
     Indication: SPONDYLITIS
  3. RIFINAH [Concomitant]
     Indication: ANTIBIOTIC PROPHYLAXIS
     Route: 048
     Dates: start: 20070619

REACTIONS (8)
  - BURNING SENSATION [None]
  - DECREASED ACTIVITY [None]
  - FATIGUE [None]
  - HYPOTENSION [None]
  - MALAISE [None]
  - PAIN [None]
  - PYREXIA [None]
  - SENSORY DISTURBANCE [None]
